FAERS Safety Report 5672803-7 (Version None)
Quarter: 2008Q1

REPORT INFORMATION
  Report Type: 
  Country: None (occurrence: None)
  Receive Date: 20080319
  Receipt Date: 20070605
  Transmission Date: 20080703
  Serious: No
  Sender: FDA-Public Use
  Company Number: US-KINGPHARMUSA00001-K200700687

PATIENT

DRUGS (4)
  1. ALTACE [Suspect]
     Indication: HYPERTENSION
     Dosage: 2.5 MG, QD
     Route: 048
     Dates: start: 20060724, end: 20070529
  2. SYNTHROID [Concomitant]
     Indication: THYROID DISORDER
     Dosage: .37 MCG, QD
     Route: 048
  3. PROPRANOLOL [Concomitant]
     Indication: HEART RATE ABNORMAL
     Dosage: 20 MG, QD
     Route: 048
  4. MAXZIDE [Concomitant]
     Indication: FLUID RETENTION
     Dosage: .25 MG, QD
     Route: 048

REACTIONS (5)
  - CHOKING SENSATION [None]
  - COUGH [None]
  - DYSPHAGIA [None]
  - DYSPHONIA [None]
  - INCREASED UPPER AIRWAY SECRETION [None]
